FAERS Safety Report 25207811 (Version 2)
Quarter: 2025Q2

REPORT INFORMATION
  Report Type: Report from Study
  Country: GB (occurrence: GB)
  Receive Date: 20250417
  Receipt Date: 20250421
  Transmission Date: 20250716
  Serious: Yes (Death, Other)
  Sender: IPSEN BIOPHARMACEUTICALS, INC.
  Company Number: GB-IPSEN Group, Research and Development-2025-08693

PATIENT
  Sex: Male

DRUGS (1)
  1. LANREOTIDE ACETATE [Suspect]
     Active Substance: LANREOTIDE ACETATE
     Indication: Product used for unknown indication
     Route: 065

REACTIONS (1)
  - Death [Fatal]
